FAERS Safety Report 6554498-3 (Version None)
Quarter: 2010Q1

REPORT INFORMATION
  Report Type: 
  Country: None (occurrence: None)
  Receive Date: 20100127
  Receipt Date: 20100113
  Transmission Date: 20100710
  Serious: Yes (Hospitalization)
  Sender: FDA-Public Use
  Company Number: GB-MYLANLABS-2010S1000629

PATIENT
  Age: 62 Year
  Sex: Female

DRUGS (5)
  1. DIAZEPAM [Suspect]
     Indication: DRUG USE FOR UNKNOWN INDICATION
  2. CHLORAL HYDRATE [Suspect]
     Indication: DRUG USE FOR UNKNOWN INDICATION
  3. CO-CODAMOL [Suspect]
     Indication: DRUG USE FOR UNKNOWN INDICATION
  4. CODEINE [Suspect]
     Indication: DRUG USE FOR UNKNOWN INDICATION
  5. METHOTREXATE [Concomitant]
     Indication: RHEUMATOID ARTHRITIS

REACTIONS (3)
  - CEREBROVASCULAR ACCIDENT [None]
  - HEMIPARESIS [None]
  - OVERDOSE [None]
